FAERS Safety Report 15665723 (Version 1)
Quarter: 2018Q4

REPORT INFORMATION
  Report Type: Spontaneous
  Country: US (occurrence: US)
  Receive Date: 20181116
  Receipt Date: 20181116
  Transmission Date: 20190205
  Serious: Yes (Hospitalization)
  Sender: FDA-Public Use
  Company Number: None

PATIENT
  Age: 64 Year
  Sex: Female
  Weight: 61.8 kg

DRUGS (12)
  1. CLOFAZIMINE [Suspect]
     Active Substance: CLOFAZIMINE
     Indication: ATYPICAL MYCOBACTERIAL INFECTION
     Route: 048
     Dates: start: 20171108
  2. CHOLECALCIFEROL [Concomitant]
     Active Substance: CHOLECALCIFEROL
  3. PANTOPRAZOLE [Concomitant]
     Active Substance: PANTOPRAZOLE
  4. FUSIDIC ACID [Concomitant]
     Active Substance: FUSIDIC ACID
  5. IRON + VITAMIN C [Concomitant]
  6. TPN [Concomitant]
     Active Substance: AMINO ACIDS\DEXTROSE\ELECTROLYTES NOS\SOYBEAN OIL
  7. LOPERAMIDE [Concomitant]
     Active Substance: LOPERAMIDE
  8. MOXIFLOXACIN. [Concomitant]
     Active Substance: MOXIFLOXACIN
  9. FOLIC ACID. [Concomitant]
     Active Substance: FOLIC ACID
  10. WARFARIN [Concomitant]
     Active Substance: WARFARIN
  11. THIAMINE. [Concomitant]
     Active Substance: THIAMINE
  12. EPOIETIN ALFA [Concomitant]

REACTIONS (5)
  - Vomiting [None]
  - Condition aggravated [None]
  - Nausea [None]
  - Renal transplant [None]
  - Diarrhoea [None]

NARRATIVE: CASE EVENT DATE: 20181031
